FAERS Safety Report 7391041-3 (Version None)
Quarter: 2011Q1

REPORT INFORMATION
  Report Type: 
  Country: None (occurrence: None)
  Receive Date: 20110324
  Receipt Date: 20110314
  Transmission Date: 20110831
  Serious: Yes (Hospitalization)
  Sender: FDA-Public Use
  Company Number: 2011MA002398

PATIENT
  Age: 37 Year
  Sex: Female

DRUGS (2)
  1. PHENTERMINE HYDROCHLORIDE [Suspect]
     Indication: WEIGHT CONTROL
     Dosage: 37.5 MG; ; PO
     Route: 048
  2. PHENTERMINE HYDROCHLORIDE [Suspect]
     Indication: WEIGHT CONTROL
     Dosage: 37.5 MG; ; PO
     Route: 048

REACTIONS (2)
  - COLITIS ISCHAEMIC [None]
  - GENERAL PHYSICAL HEALTH DETERIORATION [None]
